FAERS Safety Report 24042164 (Version 2)
Quarter: 2024Q3

REPORT INFORMATION
  Report Type: Report from Study
  Country: US (occurrence: US)
  Receive Date: 20240702
  Receipt Date: 20240709
  Transmission Date: 20241016
  Serious: Yes (Hospitalization, Other)
  Sender: PFIZER
  Company Number: US-KINGPHARMUSA00001-K201100487

PATIENT
  Age: 40 Year
  Sex: Female

DRUGS (2)
  1. THROMBIN-JMI [Suspect]
     Active Substance: THROMBIN
     Indication: Haemostasis
     Dosage: UNK
     Route: 061
  2. DEVICE\GELATIN [Suspect]
     Active Substance: DEVICE\GELATIN
     Dosage: UNK
     Route: 018

REACTIONS (5)
  - Incorrect route of product administration [Recovered/Resolved]
  - Cerebral venous sinus thrombosis [Recovered/Resolved]
  - Cerebellar infarction [Unknown]
  - Hypoacusis [Not Recovered/Not Resolved]
  - Sensory loss [Recovered/Resolved]
